FAERS Safety Report 4428912-3 (Version None)
Quarter: 2004Q3

REPORT INFORMATION
  Report Type: 
  Country: None (occurrence: None)
  Receive Date: 20040818
  Receipt Date: 20040806
  Transmission Date: 20050211
  Serious: Yes (Hospitalization)
  Sender: FDA-Public Use
  Company Number: CH-ROCHE-377078

PATIENT
  Age: 88 Year
  Sex: Female

DRUGS (5)
  1. TOREM [Suspect]
     Indication: ESSENTIAL HYPERTENSION
     Route: 048
     Dates: start: 20040625, end: 20040629
  2. TENORETIC 100 [Suspect]
     Indication: ESSENTIAL HYPERTENSION
     Dosage: STRENGTH STATED AS 25 MG/100 MG. TREATMENT STATED AS LONG TERM.
     Route: 048
     Dates: end: 20040629
  3. BLOPRESS [Suspect]
     Indication: ESSENTIAL HYPERTENSION
     Dosage: TREATMENT STATED AS LONG TERM.
     Route: 048
     Dates: end: 20040629
  4. NORVASC [Concomitant]
     Dosage: TREATMENT STATED AS LONG TERM.
     Route: 048
     Dates: end: 20040629
  5. NITRODERM [Concomitant]
     Route: 062

REACTIONS (6)
  - ABDOMINAL PAIN [None]
  - FEAR [None]
  - HYPONATRAEMIA [None]
  - MALAISE [None]
  - SYNCOPE [None]
  - VOMITING [None]
